FAERS Safety Report 4314212-9 (Version None)
Quarter: 2004Q1

REPORT INFORMATION
  Report Type: 
  Country: None (occurrence: None)
  Receive Date: 20040304
  Receipt Date: 20030328
  Transmission Date: 20041129
  Serious: No
  Sender: FDA-Public Use
  Company Number: 200456

PATIENT
  Age: 11 Year
  Sex: Male
  Weight: 22.7 kg

DRUGS (1)
  1. NUTROPIN AQ [Suspect]
     Indication: GROWTH HORMONE DEFICIENCY
     Dosage: 2.5 MG, 6/WEEK
     Dates: start: 19970703, end: 20021018

REACTIONS (1)
  - SLIPPED FEMORAL EPIPHYSIS [None]
